FAERS Safety Report 9405590 (Version 1)
Quarter: 2013Q3

REPORT INFORMATION
  Report Type: Spontaneous
  Country: US (occurrence: US)
  Receive Date: 20130717
  Receipt Date: 20130717
  Transmission Date: 20140515
  Serious: No
  Sender: FDA-Public Use
  Company Number: US-PFIZER INC-2013208403

PATIENT
  Age: 85 Year
  Sex: Male
  Weight: 88.44 kg

DRUGS (2)
  1. LYRICA [Suspect]
     Indication: FIBROMYALGIA
     Dosage: 75 MG, 1X/DAY
     Route: 048
     Dates: start: 201306, end: 201306
  2. LYRICA [Suspect]
     Dosage: 75 MG, 2X/DAY
     Route: 048
     Dates: start: 201306, end: 2013

REACTIONS (4)
  - Local swelling [Unknown]
  - Rash [Unknown]
  - Gait disturbance [Unknown]
  - Therapeutic response unexpected [Unknown]
